FAERS Safety Report 9340490 (Version 1)
Quarter: 2013Q2

REPORT INFORMATION
  Report Type: Spontaneous
  Country: IN (occurrence: None)
  Receive Date: 20130605
  Receipt Date: 20130605
  Transmission Date: 20140414
  Serious: Yes (Other)
  Sender: FDA-Public Use
  Company Number: AUR-APL-2013-04602

PATIENT
  Age: 53 Year
  Sex: Male

DRUGS (4)
  1. ESCITALOPRAM (ESCITALOPRAM) [Suspect]
     Indication: PRODUCT USED FOR UNKNOWN INDICATION
  2. PREGABALIN (PREGABALIN) [Suspect]
     Indication: PRODUCT USED FOR UNKNOWN INDICATION
  3. CARBAMAZEPINE (CARBAMAZEPINE) [Suspect]
     Indication: PRODUCT USED FOR UNKNOWN INDICATION
  4. AMITRIPTYLINE (AMITRIPTYLINE) [Suspect]
     Indication: PRODUCT USED FOR UNKNOWN INDICATION

REACTIONS (13)
  - Gait disturbance [None]
  - Lethargy [None]
  - Memory impairment [None]
  - Speech disorder [None]
  - Urinary incontinence [None]
  - Neurological decompensation [None]
  - Peripheral sensorimotor neuropathy [None]
  - Diabetic retinopathy [None]
  - Cerebral ventricle dilatation [None]
  - Cerebral atrophy [None]
  - Normal pressure hydrocephalus [None]
  - Cognitive disorder [None]
  - Central nervous system infection [None]
